FAERS Safety Report 13759650 (Version 5)
Quarter: 2017Q4

REPORT INFORMATION
  Report Type: Spontaneous
  Country: JP (occurrence: JP)
  Receive Date: 20170717
  Receipt Date: 20171208
  Transmission Date: 20180320
  Serious: Yes (Hospitalization, Disabling, Other)
  Sender: FDA-Public Use
  Company Number: JP-JNJFOC-20170712026

PATIENT
  Age: 67 Year
  Sex: Male
  Weight: 73 kg

DRUGS (6)
  1. CANAGLU [Suspect]
     Active Substance: CANAGLIFLOZIN
     Indication: DIABETES MELLITUS
     Route: 048
     Dates: start: 20141010, end: 20170401
  2. AMARYL [Concomitant]
     Active Substance: GLIMEPIRIDE
     Indication: DIABETES MELLITUS
     Route: 048
  3. CRESTOR [Concomitant]
     Active Substance: ROSUVASTATIN CALCIUM
     Indication: HYPERCHOLESTEROLAEMIA
     Route: 065
  4. HALFDIGOXIN [Concomitant]
     Active Substance: DIGOXIN
     Indication: ATRIAL FIBRILLATION
     Route: 065
  5. EUCREAS [Concomitant]
     Active Substance: METFORMIN HYDROCHLORIDE\VILDAGLIPTIN
     Indication: DIABETES MELLITUS
     Route: 048
  6. TENELIA [Concomitant]
     Active Substance: TENELIGLIPTIN
     Route: 048

REACTIONS (7)
  - Nausea [Unknown]
  - Malaise [Unknown]
  - Abdominal pain [Unknown]
  - Leg amputation [Unknown]
  - Toxic shock syndrome streptococcal [Unknown]
  - Gastrointestinal infection [Recovered/Resolved with Sequelae]
  - Arthralgia [Unknown]

NARRATIVE: CASE EVENT DATE: 20170330
